FAERS Safety Report 9921743 (Version 1)
Quarter: 2014Q1

REPORT INFORMATION
  Report Type: Spontaneous
  Country: KR (occurrence: KR)
  Receive Date: 20140225
  Receipt Date: 20140225
  Transmission Date: 20141002
  Serious: Yes (Hospitalization)
  Sender: FDA-Public Use
  Company Number: KR-SA-2014SA021197

PATIENT
  Age: 65 Year
  Sex: Female

DRUGS (5)
  1. PREDNISOLONE [Suspect]
     Indication: RENAL AMYLOIDOSIS
     Route: 065
  2. HYDROXYCHLOROQUINE [Suspect]
     Indication: RENAL AMYLOIDOSIS
     Route: 065
  3. LEFLUNOMIDE [Suspect]
     Indication: RENAL AMYLOIDOSIS
     Route: 065
  4. METHOTREXATE [Suspect]
     Indication: RENAL AMYLOIDOSIS
     Route: 065
  5. VALSARTAN [Suspect]
     Indication: RENAL AMYLOIDOSIS
     Route: 065

REACTIONS (4)
  - Renal impairment [Recovered/Resolved]
  - Blood creatinine increased [Recovered/Resolved]
  - Proteinuria [Recovered/Resolved]
  - Off label use [Unknown]
